FAERS Safety Report 9399230 (Version 1)
Quarter: 2013Q3

REPORT INFORMATION
  Report Type: Spontaneous
  Country: FR (occurrence: None)
  Receive Date: 20130709
  Receipt Date: 20130709
  Transmission Date: 20140515
  Serious: Yes (Hospitalization)
  Sender: FDA-Public Use
  Company Number: 2013-2836

PATIENT
  Age: 32 Year
  Sex: Male

DRUGS (3)
  1. SOMATULINE L.P. [Suspect]
     Indication: PANCREATIC CYST
     Dosage: (90MG, 1 IN 4 WK), SUBCUTANEOUS
     Route: 058
     Dates: start: 20130608
  2. CREON (PANCREATIN) [Concomitant]
  3. TRAMADOL (TRAMADOL) [Concomitant]

REACTIONS (4)
  - Pancreatitis acute [None]
  - Condition aggravated [None]
  - Off label use [None]
  - Blood pressure systolic increased [None]
